FAERS Safety Report 5057526-X (Version None)
Quarter: 2006Q3

REPORT INFORMATION
  Report Type: 
  Country: None (occurrence: None)
  Receive Date: 20060721
  Receipt Date: 20051103
  Transmission Date: 20061208
  Serious: No
  Sender: FDA-Public Use
  Company Number: US-GLAXOSMITHKLINE-A0580799A

PATIENT
  Age: 63 Year
  Sex: Male

DRUGS (10)
  1. AVANDIA [Suspect]
     Dosage: 4MG PER DAY
     Route: 048
  2. GLUCOTROL [Concomitant]
  3. TOPROL-XL [Concomitant]
  4. OXYCONTIN [Concomitant]
  5. HYDROCODONE [Concomitant]
  6. CARDIAC MEDICATION [Concomitant]
  7. ALTACE [Concomitant]
  8. VITAMIN [Concomitant]
  9. OMEPRAZOLE [Concomitant]
  10. GLIPIZIDE [Concomitant]

REACTIONS (3)
  - BLOOD GLUCOSE ABNORMAL [None]
  - MALAISE [None]
  - PAIN IN EXTREMITY [None]
